FAERS Safety Report 21947506 (Version 1)
Quarter: 2023Q1

REPORT INFORMATION
  Report Type: Spontaneous
  Country: CN (occurrence: CN)
  Receive Date: 20230202
  Receipt Date: 20230202
  Transmission Date: 20230417
  Serious: Yes (Hospitalization, Other)
  Sender: FDA-Public Use
  Company Number: None

PATIENT
  Age: 32 Year
  Sex: Female

DRUGS (2)
  1. METHOTREXATE [Suspect]
     Active Substance: METHOTREXATE
     Indication: Dermatomyositis
     Dosage: UNK
     Route: 048
  2. METHYLPREDNISOLONE [Suspect]
     Active Substance: METHYLPREDNISOLONE
     Indication: Dermatomyositis
     Dosage: UNK
     Route: 048

REACTIONS (6)
  - Ureterolithiasis [Recovered/Resolved]
  - Urinoma [Recovered/Resolved]
  - Ureteric stenosis [Recovered/Resolved]
  - Pyelitis [Recovered/Resolved]
  - Urinary tract candidiasis [Recovered/Resolved]
  - Off label use [Unknown]
